FAERS Safety Report 7070573-1 (Version None)
Quarter: 2010Q4

REPORT INFORMATION
  Report Type: 
  Country: None (occurrence: None)
  Receive Date: 20101029
  Receipt Date: 20101015
  Transmission Date: 20110411
  Serious: Yes (Hospitalization, Other)
  Sender: FDA-Public Use
  Company Number: DE-CELGENEUS-062-21880-10080308

PATIENT
  Age: 54 Year
  Sex: Female

DRUGS (10)
  1. REVLIMID [Suspect]
     Indication: MULTIPLE MYELOMA
     Route: 048
     Dates: start: 20100721, end: 20100803
  2. REVLIMID [Suspect]
     Route: 048
     Dates: start: 20100818
  3. DEXAMETHASONE [Suspect]
     Indication: MULTIPLE MYELOMA
     Route: 048
     Dates: start: 20100717, end: 20100720
  4. DEXAMETHASONE [Suspect]
     Route: 048
     Dates: start: 20100721
  5. ADRIAMYCIN PFS [Suspect]
     Indication: MULTIPLE MYELOMA
     Route: 051
     Dates: start: 20100723
  6. TAVANIC [Suspect]
     Indication: ANTI-INFECTIVE THERAPY
     Route: 048
     Dates: start: 20100727, end: 20100801
  7. ACIC [Concomitant]
     Indication: INFECTION PROPHYLAXIS
     Route: 048
     Dates: start: 20100722
  8. COTRIM [Concomitant]
     Route: 048
     Dates: start: 20100727, end: 20100801
  9. CLEXANE [Concomitant]
     Indication: THROMBOSIS PROPHYLAXIS
     Route: 058
     Dates: start: 20100715
  10. NEULASTA [Concomitant]
     Indication: PROPHYLAXIS
     Route: 058
     Dates: start: 20100726, end: 20100726

REACTIONS (2)
  - DIARRHOEA [None]
  - FEBRILE INFECTION [None]
